FAERS Safety Report 7382172-2 (Version None)
Quarter: 2011Q1

REPORT INFORMATION
  Report Type: 
  Country: None (occurrence: None)
  Receive Date: 20110329
  Receipt Date: 20110322
  Transmission Date: 20110831
  Serious: Yes (Other)
  Sender: FDA-Public Use
  Company Number: HR-ABBOTT-11P-216-0713237-00

PATIENT
  Sex: Male

DRUGS (1)
  1. HUMIRA [Suspect]
     Indication: PRODUCT USED FOR UNKNOWN INDICATION
     Dosage: 2 APPLICATIONS

REACTIONS (3)
  - HYPERGLYCAEMIA [None]
  - ALANINE AMINOTRANSFERASE INCREASED [None]
  - DIABETES MELLITUS INADEQUATE CONTROL [None]
